FAERS Safety Report 6388962-7 (Version None)
Quarter: 2009Q4

REPORT INFORMATION
  Report Type: 
  Country: None (occurrence: None)
  Receive Date: 20091005
  Receipt Date: 20091001
  Transmission Date: 20100525
  Serious: Yes (Other)
  Sender: FDA-Public Use
  Company Number: US-AMGEN-US364387

PATIENT
  Sex: Male
  Weight: 94 kg

DRUGS (2)
  1. NPLATE [Suspect]
     Indication: IDIOPATHIC THROMBOCYTOPENIC PURPURA
     Dates: start: 20090827
  2. PREDNISONE TAB [Suspect]
     Route: 065

REACTIONS (1)
  - PLATELET COUNT DECREASED [None]
